FAERS Safety Report 9222182 (Version 1)
Quarter: 2013Q2

REPORT INFORMATION
  Report Type: Spontaneous
  Country: US (occurrence: None)
  Receive Date: 20130408
  Receipt Date: 20130408
  Transmission Date: 20140414
  Serious: Yes (Other)
  Sender: FDA-Public Use
  Company Number: SYM-2013-02218

PATIENT
  Sex: Female

DRUGS (1)
  1. ULTRAM [Suspect]
     Indication: FIBROMYALGIA
     Route: 048
     Dates: end: 20130320

REACTIONS (5)
  - Insomnia [None]
  - Drug effect decreased [None]
  - Drug dependence [None]
  - Drug withdrawal syndrome [None]
  - Drug dependence [None]
